FAERS Safety Report 20319723 (Version 3)
Quarter: 2022Q1

REPORT INFORMATION
  Report Type: Report from Study
  Country: CO (occurrence: CO)
  Receive Date: 20220110
  Receipt Date: 20220222
  Transmission Date: 20220423
  Serious: Yes (Death, Hospitalization)
  Sender: FDA-Public Use
  Company Number: CO-JNJFOC-20220109022

PATIENT
  Age: 67 Year
  Sex: Male
  Weight: 60 kg

DRUGS (2)
  1. IMBRUVICA [Suspect]
     Active Substance: IBRUTINIB
     Indication: Mantle cell lymphoma
     Route: 048
     Dates: start: 20210808
  2. IMBRUVICA [Suspect]
     Active Substance: IBRUTINIB
     Route: 048
     Dates: start: 20210908, end: 20220208

REACTIONS (3)
  - Mantle cell lymphoma [Fatal]
  - Abdominal pain [Fatal]
  - White blood cell count increased [Fatal]

NARRATIVE: CASE EVENT DATE: 20211201
